FAERS Safety Report 7978672-4 (Version None)
Quarter: 2011Q4

REPORT INFORMATION
  Report Type: 
  Country: None (occurrence: None)
  Receive Date: 20111129
  Receipt Date: 20110808
  Transmission Date: 20120403
  Serious: No
  Sender: FDA-Public Use
  Company Number: PHEH2011US00671

PATIENT
  Sex: Male

DRUGS (4)
  1. SANDOSTATIN [Concomitant]
  2. AFINITOR [Suspect]
     Dosage: 5 MG, BID, ORAL
     Route: 048
  3. LOVENOX [Concomitant]
  4. PANCREASE MT (AMYLASE, LIPASE, PROTEASE) [Concomitant]

REACTIONS (2)
  - FATIGUE [None]
  - NECK PAIN [None]
